FAERS Safety Report 5256982-1 (Version None)
Quarter: 2007Q1

REPORT INFORMATION
  Report Type: 
  Country: None (occurrence: None)
  Receive Date: 20070305
  Receipt Date: 20070305
  Transmission Date: 20070707
  Serious: Yes (Hospitalization)
  Sender: FDA-Public Use
  Company Number: None

PATIENT
  Sex: Female
  Weight: 69.8539 kg

DRUGS (2)
  1. CUBICIN [Suspect]
     Indication: OSTEOMYELITIS
     Dosage: 280MG DAILY IV DRIP
     Route: 041
     Dates: start: 20070118, end: 20070131
  2. CUBICIN [Suspect]
     Indication: STAPHYLOCOCCAL INFECTION
     Dosage: 280MG DAILY IV DRIP
     Route: 041
     Dates: start: 20070118, end: 20070131

REACTIONS (1)
  - HEPATIC ENZYME INCREASED [None]
